FAERS Safety Report 4319459-3 (Version None)
Quarter: 2004Q1

REPORT INFORMATION
  Report Type: 
  Country: None (occurrence: None)
  Receive Date: 20040316
  Receipt Date: 20040302
  Transmission Date: 20041129
  Serious: Yes (Other)
  Sender: FDA-Public Use
  Company Number: 2004-BP-00981BP

PATIENT
  Age: 43 Year
  Sex: Male

DRUGS (2)
  1. MIRAPEX [Suspect]
     Indication: PARKINSON'S DISEASE
     Dosage: 2.25 MG (0.75 MG, 0.75 TID), PO
     Route: 048
     Dates: start: 20010101
  2. PAXIL [Suspect]

REACTIONS (2)
  - OBSESSIVE-COMPULSIVE DISORDER [None]
  - THINKING ABNORMAL [None]
